FAERS Safety Report 9470325 (Version 2)
Quarter: 2013Q3

REPORT INFORMATION
  Report Type: Report from Study
  Country: US (occurrence: US)
  Receive Date: 20130822
  Receipt Date: 20130822
  Transmission Date: 20140515
  Serious: Yes (Other)
  Sender: FDA-Public Use
  Company Number: US-SANOFI-AVENTIS-2013SA071539

PATIENT
  Age: 49 Year
  Sex: Female
  Weight: 76.65 kg

DRUGS (7)
  1. AUBAGIO [Suspect]
     Indication: MULTIPLE SCLEROSIS RELAPSE
     Route: 048
     Dates: start: 20130426
  2. WELLBUTRIN [Concomitant]
     Indication: BIPOLAR DISORDER
     Route: 065
     Dates: start: 20130620
  3. VERAPAMIL [Concomitant]
     Indication: HYPERTENSION
     Route: 065
     Dates: start: 2009
  4. SEROQUEL [Concomitant]
     Indication: BIPOLAR DISORDER
     Route: 065
     Dates: start: 2010
  5. DIVALPROEX SODIUM [Concomitant]
     Indication: MULTIPLE SCLEROSIS
     Route: 065
     Dates: start: 20130530
  6. LORTAB [Concomitant]
     Indication: PAIN
     Route: 065
     Dates: start: 20130626
  7. NUEDEXTA [Concomitant]
     Indication: MULTIPLE SCLEROSIS
     Route: 065
     Dates: start: 20130527

REACTIONS (13)
  - Fatigue [Recovered/Resolved]
  - Multiple sclerosis relapse [Not Recovered/Not Resolved]
  - Temperature intolerance [Not Recovered/Not Resolved]
  - Joint swelling [Recovered/Resolved]
  - Muscular weakness [Recovered/Resolved]
  - Vision blurred [Recovered/Resolved]
  - Muscle spasms [Recovered/Resolved]
  - Pain [Recovered/Resolved]
  - Migraine [Recovered/Resolved]
  - Pollakiuria [Recovered/Resolved]
  - Flight of ideas [Not Recovered/Not Resolved]
  - Hypertension [Not Recovered/Not Resolved]
  - Drug dose omission [Unknown]
